FAERS Safety Report 12340851 (Version 1)
Quarter: 2016Q2

REPORT INFORMATION
  Report Type: Spontaneous
  Country: NL (occurrence: NL)
  Receive Date: 20160506
  Receipt Date: 20160506
  Transmission Date: 20160815
  Serious: Yes (Other)
  Sender: FDA-Public Use
  Company Number: NL-TEVA-657187ISR

PATIENT
  Sex: Female

DRUGS (5)
  1. VINBLASTINE [Suspect]
     Active Substance: VINBLASTINE
     Indication: CONGENITAL TERATOMA
     Route: 065
     Dates: start: 1983
  2. CISPLATIN. [Suspect]
     Active Substance: CISPLATIN
     Indication: CONGENITAL TERATOMA
     Route: 065
     Dates: start: 1983
  3. TENIPOSIDE. [Suspect]
     Active Substance: TENIPOSIDE
     Indication: CONGENITAL TERATOMA
     Route: 065
     Dates: start: 1983
  4. BLEOMYCIN [Suspect]
     Active Substance: BLEOMYCIN SULFATE
     Indication: CONGENITAL TERATOMA
     Route: 065
     Dates: start: 1983
  5. CYCLOPHOSPHAMIDE. [Suspect]
     Active Substance: CYCLOPHOSPHAMIDE
     Indication: CONGENITAL TERATOMA
     Route: 065
     Dates: start: 1983

REACTIONS (1)
  - Deafness [Unknown]
